FAERS Safety Report 22229482 (Version 3)
Quarter: 2023Q2

REPORT INFORMATION
  Report Type: Spontaneous
  Country: CA (occurrence: CA)
  Receive Date: 20230419
  Receipt Date: 20230517
  Transmission Date: 20230722
  Serious: Yes (Hospitalization, Disabling, Other)
  Sender: FDA-Public Use
  Company Number: CA-ELI_LILLY_AND_COMPANY-CA202304004948

PATIENT
  Age: 80 Year
  Sex: Male
  Weight: 89 kg

DRUGS (222)
  1. TADALAFIL [Suspect]
     Active Substance: TADALAFIL
     Indication: Product used for unknown indication
     Dosage: UNK UNK, UNKNOWN
     Route: 065
  2. ACETYLCYSTEINE [Suspect]
     Active Substance: ACETYLCYSTEINE
     Indication: Product used for unknown indication
     Dosage: UNK UNK, UNKNOWN
     Route: 065
  3. ACETYLCYSTEINE [Suspect]
     Active Substance: ACETYLCYSTEINE
     Dosage: UNK UNK, UNKNOWN
     Route: 065
  4. ACETYLCYSTEINE [Suspect]
     Active Substance: ACETYLCYSTEINE
     Dosage: UNK UNK, UNKNOWN
     Route: 065
  5. ACETYLCYSTEINE [Suspect]
     Active Substance: ACETYLCYSTEINE
     Dosage: UNK UNK, UNKNOWN
     Route: 065
  6. ACETYLCYSTEINE [Suspect]
     Active Substance: ACETYLCYSTEINE
     Dosage: UNK UNK, UNKNOWN
     Route: 065
  7. ACETYLCYSTEINE [Suspect]
     Active Substance: ACETYLCYSTEINE
     Dosage: UNK UNK, UNKNOWN
     Route: 065
  8. ACETYLCYSTEINE [Suspect]
     Active Substance: ACETYLCYSTEINE
     Dosage: UNK UNK, UNKNOWN
     Route: 065
  9. ACETYLCYSTEINE [Suspect]
     Active Substance: ACETYLCYSTEINE
     Dosage: UNK UNK, UNKNOWN
     Route: 065
  10. ACETYLCYSTEINE [Suspect]
     Active Substance: ACETYLCYSTEINE
     Dosage: UNK UNK, UNKNOWN
     Route: 065
  11. ACETYLCYSTEINE [Suspect]
     Active Substance: ACETYLCYSTEINE
     Dosage: UNK UNK, UNKNOWN
     Route: 065
  12. ACETYLCYSTEINE [Suspect]
     Active Substance: ACETYLCYSTEINE
     Dosage: UNK UNK, UNKNOWN
     Route: 065
  13. ACETYLCYSTEINE [Suspect]
     Active Substance: ACETYLCYSTEINE
     Dosage: UNK UNK, UNKNOWN
     Route: 065
  14. ASPIRIN [Suspect]
     Active Substance: ASPIRIN
     Indication: Product used for unknown indication
     Dosage: UNK UNK, UNKNOWN
     Route: 065
  15. ASPIRIN [Suspect]
     Active Substance: ASPIRIN
     Dosage: UNK UNK, UNKNOWN
     Route: 065
  16. ASPIRIN [Suspect]
     Active Substance: ASPIRIN
     Dosage: UNK UNK, UNKNOWN
     Route: 065
  17. ASPIRIN [Suspect]
     Active Substance: ASPIRIN
     Dosage: UNK UNK, UNKNOWN
     Route: 065
  18. ACLIDINIUM BROMIDE [Suspect]
     Active Substance: ACLIDINIUM BROMIDE
     Indication: Product used for unknown indication
     Dosage: UNK UNK, UNKNOWN
     Route: 065
  19. ACLIDINIUM BROMIDE [Suspect]
     Active Substance: ACLIDINIUM BROMIDE
     Dosage: UNK UNK, UNKNOWN
     Route: 055
  20. ACLIDINIUM BROMIDE\FORMOTEROL FUMARATE [Suspect]
     Active Substance: ACLIDINIUM BROMIDE\FORMOTEROL FUMARATE
     Indication: Product used for unknown indication
     Dosage: UNK UNK, UNKNOWN
     Route: 055
  21. ACLIDINIUM BROMIDE\FORMOTEROL FUMARATE [Suspect]
     Active Substance: ACLIDINIUM BROMIDE\FORMOTEROL FUMARATE
     Dosage: UNK UNK, UNKNOWN
     Route: 055
  22. ACLIDINIUM BROMIDE\FORMOTEROL FUMARATE [Suspect]
     Active Substance: ACLIDINIUM BROMIDE\FORMOTEROL FUMARATE
     Dosage: UNK UNK, UNKNOWN
     Route: 055
  23. ACLIDINIUM BROMIDE\FORMOTEROL FUMARATE [Suspect]
     Active Substance: ACLIDINIUM BROMIDE\FORMOTEROL FUMARATE
     Indication: Product used for unknown indication
     Dosage: UNK UNK, UNKNOWN
     Route: 065
  24. ACLIDINIUM BROMIDE\FORMOTEROL FUMARATE [Suspect]
     Active Substance: ACLIDINIUM BROMIDE\FORMOTEROL FUMARATE
     Dosage: UNK UNK, UNKNOWN
     Route: 055
  25. ACLIDINIUM BROMIDE\FORMOTEROL FUMARATE [Suspect]
     Active Substance: ACLIDINIUM BROMIDE\FORMOTEROL FUMARATE
     Dosage: UNK UNK, UNKNOWN
     Route: 055
  26. ACLIDINIUM BROMIDE\FORMOTEROL FUMARATE [Suspect]
     Active Substance: ACLIDINIUM BROMIDE\FORMOTEROL FUMARATE
     Dosage: UNK UNK, UNKNOWN
     Route: 055
  27. ACLIDINIUM BROMIDE\FORMOTEROL FUMARATE [Suspect]
     Active Substance: ACLIDINIUM BROMIDE\FORMOTEROL FUMARATE
     Dosage: UNK UNK, UNKNOWN
     Route: 055
  28. ACLIDINIUM BROMIDE\FORMOTEROL FUMARATE [Suspect]
     Active Substance: ACLIDINIUM BROMIDE\FORMOTEROL FUMARATE
     Indication: Product used for unknown indication
     Dosage: UNK UNK, UNKNOWN
     Route: 055
  29. ACLIDINIUM BROMIDE\FORMOTEROL FUMARATE [Suspect]
     Active Substance: ACLIDINIUM BROMIDE\FORMOTEROL FUMARATE
     Dosage: UNK UNK, UNKNOWN
     Route: 055
  30. ALBUTEROL SULFATE [Suspect]
     Active Substance: ALBUTEROL SULFATE
     Indication: Asthma
     Dosage: UNK UNK, UNKNOWN
     Route: 065
  31. ALVESCO [Suspect]
     Active Substance: CICLESONIDE
     Indication: Asthma
     Dosage: UNK UNK, UNKNOWN
     Route: 055
  32. ALVESCO [Suspect]
     Active Substance: CICLESONIDE
     Dosage: UNK UNK, UNKNOWN
     Route: 055
  33. ALVESCO [Suspect]
     Active Substance: CICLESONIDE
     Dosage: UNK UNK, UNKNOWN
     Route: 055
  34. ALVESCO [Suspect]
     Active Substance: CICLESONIDE
     Dosage: UNK UNK, UNKNOWN
     Route: 055
  35. AMLODIPINE BESYLATE [Suspect]
     Active Substance: AMLODIPINE BESYLATE
     Indication: Product used for unknown indication
     Dosage: UNK UNK, UNKNOWN
     Route: 065
  36. AMLODIPINE BESYLATE [Suspect]
     Active Substance: AMLODIPINE BESYLATE
     Dosage: UNK UNK, UNKNOWN
     Route: 065
  37. AMLODIPINE BESYLATE [Suspect]
     Active Substance: AMLODIPINE BESYLATE
     Dosage: UNK UNK, UNKNOWN
     Route: 065
  38. AMLODIPINE BESYLATE [Suspect]
     Active Substance: AMLODIPINE BESYLATE
     Dosage: UNK UNK, UNKNOWN
     Route: 065
  39. AMLODIPINE BESYLATE [Suspect]
     Active Substance: AMLODIPINE BESYLATE
     Dosage: UNK UNK, UNKNOWN
     Route: 065
  40. AMLODIPINE BESYLATE [Suspect]
     Active Substance: AMLODIPINE BESYLATE
     Dosage: UNK UNK, UNKNOWN
     Route: 065
  41. AMLODIPINE BESYLATE [Suspect]
     Active Substance: AMLODIPINE BESYLATE
     Dosage: UNK UNK, UNKNOWN
     Route: 065
  42. AMLODIPINE MALEATE [Suspect]
     Active Substance: AMLODIPINE MALEATE
     Indication: Product used for unknown indication
     Dosage: UNK UNK, UNKNOWN
     Route: 065
  43. AMLODIPINE MALEATE [Suspect]
     Active Substance: AMLODIPINE MALEATE
     Dosage: UNK UNK, UNKNOWN
     Route: 065
  44. ASPIRIN [Suspect]
     Active Substance: ASPIRIN
     Indication: Product used for unknown indication
     Dosage: UNK UNK, UNKNOWN
     Route: 065
  45. ASPIRIN [Suspect]
     Active Substance: ASPIRIN
     Dosage: UNK UNK, UNKNOWN
     Route: 065
  46. ASACOL [Suspect]
     Active Substance: MESALAMINE
     Indication: Product used for unknown indication
     Dosage: UNK UNK, UNKNOWN
     Route: 065
  47. ASACOL [Suspect]
     Active Substance: MESALAMINE
     Dosage: UNK UNK, UNKNOWN
     Route: 065
  48. ASACOL [Suspect]
     Active Substance: MESALAMINE
     Dosage: UNK UNK, UNKNOWN
     Route: 065
  49. ASACOL [Suspect]
     Active Substance: MESALAMINE
     Dosage: UNK UNK, UNKNOWN
     Route: 065
  50. ASACOL [Suspect]
     Active Substance: MESALAMINE
     Dosage: UNK UNK, UNKNOWN
     Route: 065
  51. ASACOL [Suspect]
     Active Substance: MESALAMINE
     Dosage: UNK UNK, UNKNOWN
     Route: 065
  52. ASACOL [Suspect]
     Active Substance: MESALAMINE
     Dosage: UNK UNK, UNKNOWN
     Route: 065
  53. AZITHROMYCIN [Suspect]
     Active Substance: AZITHROMYCIN
     Indication: Product used for unknown indication
     Dosage: UNK UNK, UNKNOWN
     Route: 065
  54. AZITHROMYCIN [Suspect]
     Active Substance: AZITHROMYCIN
     Dosage: UNK UNK, UNKNOWN
     Route: 065
  55. AZITHROMYCIN [Suspect]
     Active Substance: AZITHROMYCIN
     Dosage: UNK UNK, UNKNOWN
     Route: 065
  56. AZITHROMYCIN [Suspect]
     Active Substance: AZITHROMYCIN
     Dosage: UNK UNK, UNKNOWN
     Route: 065
  57. AZITHROMYCIN [Suspect]
     Active Substance: AZITHROMYCIN
     Dosage: UNK UNK, UNKNOWN
     Route: 065
  58. AZITHROMYCIN [Suspect]
     Active Substance: AZITHROMYCIN
     Dosage: UNK UNK, UNKNOWN
     Route: 065
  59. AZITHROMYCIN [Suspect]
     Active Substance: AZITHROMYCIN
     Dosage: UNK UNK, UNKNOWN
     Route: 065
  60. AZITHROMYCIN [Suspect]
     Active Substance: AZITHROMYCIN
     Dosage: UNK UNK, UNKNOWN
     Route: 065
  61. AZITHROMYCIN [Suspect]
     Active Substance: AZITHROMYCIN
     Dosage: UNK UNK, UNKNOWN
     Route: 065
  62. BUDESONIDE\FORMOTEROL FUMARATE [Suspect]
     Active Substance: BUDESONIDE\FORMOTEROL FUMARATE
     Indication: Asthma
     Dosage: 1 DOSAGE FORM, UNKNOWN
     Route: 055
  63. BUDESONIDE\FORMOTEROL FUMARATE [Suspect]
     Active Substance: BUDESONIDE\FORMOTEROL FUMARATE
     Dosage: 2 DOSAGE FORM, BID (1 EVERY 12 HOURS)
     Route: 065
  64. BUDESONIDE\FORMOTEROL FUMARATE [Suspect]
     Active Substance: BUDESONIDE\FORMOTEROL FUMARATE
     Dosage: 1 DOSAGE FORM, DAILY
     Route: 055
  65. BUDESONIDE\FORMOTEROL FUMARATE [Suspect]
     Active Substance: BUDESONIDE\FORMOTEROL FUMARATE
     Dosage: 4 DOSAGE FORM, UNKNOWN
     Route: 055
  66. BUDESONIDE\FORMOTEROL FUMARATE [Suspect]
     Active Substance: BUDESONIDE\FORMOTEROL FUMARATE
     Dosage: 2 DOSAGE FORM, DAILY
     Route: 055
  67. CICLESONIDE [Suspect]
     Active Substance: CICLESONIDE
     Indication: Product used for unknown indication
     Dosage: UNK UNK, UNKNOWN
     Route: 055
  68. CICLESONIDE [Suspect]
     Active Substance: CICLESONIDE
     Dosage: UNK UNK, UNKNOWN
     Route: 055
  69. CICLESONIDE [Suspect]
     Active Substance: CICLESONIDE
     Dosage: UNK UNK, UNKNOWN
     Route: 065
  70. DOXYCYCLINE [Suspect]
     Active Substance: DOXYCYCLINE
     Indication: Product used for unknown indication
     Dosage: UNK UNK, UNKNOWN
     Route: 065
  71. DOXYCYCLINE [Suspect]
     Active Substance: DOXYCYCLINE
     Dosage: UNK UNK, UNKNOWN
     Route: 065
  72. DOXYCYCLINE [Suspect]
     Active Substance: DOXYCYCLINE
     Dosage: UNK UNK, UNKNOWN
     Route: 065
  73. DOXYCYCLINE [Suspect]
     Active Substance: DOXYCYCLINE
     Dosage: UNK UNK, UNKNOWN
     Route: 065
  74. DOXYCYCLINE [Suspect]
     Active Substance: DOXYCYCLINE
     Dosage: UNK UNK, UNKNOWN
     Route: 065
  75. DOXYCYCLINE [Suspect]
     Active Substance: DOXYCYCLINE
     Dosage: UNK UNK, UNKNOWN
     Route: 065
  76. DOXYCYCLINE [Suspect]
     Active Substance: DOXYCYCLINE
     Dosage: UNK UNK, UNKNOWN
     Route: 065
  77. DOXYCYCLINE HYCLATE [Suspect]
     Active Substance: DOXYCYCLINE HYCLATE
     Indication: Product used for unknown indication
     Dosage: UNK UNK, UNKNOWN
     Route: 065
  78. DOXYCYCLINE HYCLATE [Suspect]
     Active Substance: DOXYCYCLINE HYCLATE
     Dosage: UNK UNK, UNKNOWN
     Route: 065
  79. MORNIFLUMATE [Suspect]
     Active Substance: MORNIFLUMATE
     Indication: Product used for unknown indication
     Dosage: UNK UNK, UNKNOWN
     Route: 065
  80. MORNIFLUMATE [Suspect]
     Active Substance: MORNIFLUMATE
     Dosage: UNK UNK, UNKNOWN
     Route: 065
  81. MORNIFLUMATE [Suspect]
     Active Substance: MORNIFLUMATE
     Dosage: UNK UNK, UNKNOWN
     Route: 065
  82. MORNIFLUMATE [Suspect]
     Active Substance: MORNIFLUMATE
     Dosage: UNK UNK, UNKNOWN
     Route: 065
  83. MORNIFLUMATE [Suspect]
     Active Substance: MORNIFLUMATE
     Dosage: UNK UNK, UNKNOWN
     Route: 065
  84. MORNIFLUMATE [Suspect]
     Active Substance: MORNIFLUMATE
     Dosage: UNK UNK, UNKNOWN
     Route: 065
  85. MORNIFLUMATE [Suspect]
     Active Substance: MORNIFLUMATE
     Dosage: UNK UNK, UNKNOWN
     Route: 065
  86. MORNIFLUMATE [Suspect]
     Active Substance: MORNIFLUMATE
     Dosage: UNK UNK, UNKNOWN
     Route: 065
  87. FLUMIST QUADRIVALENT [Suspect]
     Active Substance: INFLUENZA A VIRUS A/CALIFORNIA/7/2009 (H1N1) LIVE(ATTENUATED) ANTIGEN\INFLUENZA A VIRUS A/TEXAS/50/2
     Indication: Prophylaxis
     Dosage: UNK UNK, UNKNOWN
     Route: 065
  88. FLUMIST QUADRIVALENT [Suspect]
     Active Substance: INFLUENZA A VIRUS A/CALIFORNIA/7/2009 (H1N1) LIVE(ATTENUATED) ANTIGEN\INFLUENZA A VIRUS A/TEXAS/50/2
     Dosage: UNK UNK, UNKNOWN
     Route: 065
  89. FLUMIST QUADRIVALENT [Suspect]
     Active Substance: INFLUENZA A VIRUS A/CALIFORNIA/7/2009 (H1N1) LIVE(ATTENUATED) ANTIGEN\INFLUENZA A VIRUS A/TEXAS/50/2
     Dosage: UNK UNK, UNKNOWN
     Route: 065
  90. FLUMIST QUADRIVALENT [Suspect]
     Active Substance: INFLUENZA A VIRUS A/CALIFORNIA/7/2009 (H1N1) LIVE(ATTENUATED) ANTIGEN\INFLUENZA A VIRUS A/TEXAS/50/2
     Dosage: UNK UNK, UNKNOWN
     Route: 065
  91. INFLUENZA VIRUS VACCINE [Suspect]
     Active Substance: INFLUENZA VIRUS VACCINE
     Indication: Prophylaxis
     Dosage: UNK UNK, UNKNOWN
     Route: 051
  92. INFLUENZA VIRUS VACCINE [Suspect]
     Active Substance: INFLUENZA VIRUS VACCINE
     Indication: Immunisation
     Dosage: UNK UNK, UNKNOWN
     Route: 051
  93. INFLUENZA VIRUS VACCINE [Suspect]
     Active Substance: INFLUENZA VIRUS VACCINE
     Dosage: UNK UNK, UNKNOWN
     Route: 051
  94. INFLUENZA VIRUS VACCINE [Suspect]
     Active Substance: INFLUENZA VIRUS VACCINE
     Indication: Product used for unknown indication
     Dosage: UNK UNK, UNKNOWN
     Route: 065
  95. INFLUENZA VIRUS VACCINE [Suspect]
     Active Substance: INFLUENZA VIRUS VACCINE
     Dosage: UNK UNK, UNKNOWN
     Route: 065
  96. LEVOFLOXACIN [Suspect]
     Active Substance: LEVOFLOXACIN
     Indication: Prophylaxis
     Dosage: UNK UNK, UNKNOWN
     Route: 065
  97. LEVOFLOXACIN [Suspect]
     Active Substance: LEVOFLOXACIN
     Dosage: UNK UNK, UNKNOWN
     Route: 065
  98. LEVOFLOXACIN [Suspect]
     Active Substance: LEVOFLOXACIN
     Dosage: UNK UNK, UNKNOWN
     Route: 065
  99. LEVOFLOXACIN [Suspect]
     Active Substance: LEVOFLOXACIN
     Dosage: UNK UNK, UNKNOWN
     Route: 065
  100. LEVOFLOXACIN HEMIHYDRATE [Suspect]
     Active Substance: LEVOFLOXACIN
     Indication: Product used for unknown indication
     Dosage: UNK UNK, UNKNOWN
     Route: 065
  101. LEVOFLOXACIN HEMIHYDRATE [Suspect]
     Active Substance: LEVOFLOXACIN
     Dosage: UNK UNK, UNKNOWN
     Route: 065
  102. LEVOFLOXACIN HEMIHYDRATE [Suspect]
     Active Substance: LEVOFLOXACIN
     Dosage: UNK UNK, UNKNOWN
     Route: 065
  103. LEVOFLOXACIN HEMIHYDRATE [Suspect]
     Active Substance: LEVOFLOXACIN
     Dosage: UNK UNK, UNKNOWN
     Route: 065
  104. LYRICA [Suspect]
     Active Substance: PREGABALIN
     Indication: Product used for unknown indication
     Dosage: UNK UNK, UNKNOWN
     Route: 065
  105. LYRICA [Suspect]
     Active Substance: PREGABALIN
     Dosage: UNK UNK, UNKNOWN
     Route: 065
  106. LYRICA [Suspect]
     Active Substance: PREGABALIN
     Dosage: UNK UNK, UNKNOWN
     Route: 065
  107. LYRICA [Suspect]
     Active Substance: PREGABALIN
     Dosage: UNK UNK, UNKNOWN
     Route: 065
  108. LYRICA [Suspect]
     Active Substance: PREGABALIN
     Dosage: UNK UNK, UNKNOWN
     Route: 065
  109. LYRICA [Suspect]
     Active Substance: PREGABALIN
     Dosage: UNK UNK, UNKNOWN
     Route: 065
  110. MELATONIN [Suspect]
     Active Substance: MELATONIN
     Indication: Product used for unknown indication
     Dosage: UNK UNK, UNKNOWN
     Route: 065
  111. MELATONIN [Suspect]
     Active Substance: MELATONIN
     Dosage: UNK UNK, UNKNOWN
     Route: 065
  112. MELATONIN [Suspect]
     Active Substance: MELATONIN
     Dosage: UNK UNK, UNKNOWN
     Route: 065
  113. MELATONIN [Suspect]
     Active Substance: MELATONIN
     Dosage: UNK UNK, UNKNOWN
     Route: 065
  114. MELATONIN [Suspect]
     Active Substance: MELATONIN
     Dosage: UNK UNK, UNKNOWN
     Route: 065
  115. MELATONIN [Suspect]
     Active Substance: MELATONIN
     Dosage: UNK UNK, UNKNOWN
     Route: 065
  116. MELATONIN [Suspect]
     Active Substance: MELATONIN
     Dosage: UNK UNK, UNKNOWN
     Route: 065
  117. MELATONIN [Suspect]
     Active Substance: MELATONIN
     Dosage: UNK UNK, UNKNOWN
     Route: 065
  118. MELATONIN [Suspect]
     Active Substance: MELATONIN
     Dosage: UNK UNK, UNKNOWN
     Route: 065
  119. NAPROXEN [Suspect]
     Active Substance: NAPROXEN
     Indication: Product used for unknown indication
     Dosage: UNK UNK, UNKNOWN
     Route: 065
  120. NAPROXEN [Suspect]
     Active Substance: NAPROXEN
     Dosage: UNK UNK, UNKNOWN
     Route: 065
  121. NAPROXEN [Suspect]
     Active Substance: NAPROXEN
     Dosage: UNK UNK, UNKNOWN
     Route: 065
  122. NAPROXEN [Suspect]
     Active Substance: NAPROXEN
     Dosage: UNK UNK, UNKNOWN
     Route: 065
  123. NAPROXEN [Suspect]
     Active Substance: NAPROXEN
     Dosage: UNK UNK, UNKNOWN
     Route: 065
  124. NAPROXEN [Suspect]
     Active Substance: NAPROXEN
     Dosage: UNK UNK, UNKNOWN
     Route: 065
  125. NAPROXEN [Suspect]
     Active Substance: NAPROXEN
     Dosage: UNK UNK, UNKNOWN
     Route: 065
  126. NAPROXEN [Suspect]
     Active Substance: NAPROXEN
     Dosage: UNK UNK, UNKNOWN
     Route: 065
  127. NAPROXEN [Suspect]
     Active Substance: NAPROXEN
     Dosage: UNK UNK, UNKNOWN
     Route: 065
  128. NAPROXEN [Suspect]
     Active Substance: NAPROXEN
     Dosage: UNK UNK, UNKNOWN
     Route: 065
  129. NAPROXEN [Suspect]
     Active Substance: NAPROXEN
     Dosage: UNK UNK, UNKNOWN
     Route: 065
  130. NAPROXEN [Suspect]
     Active Substance: NAPROXEN
     Dosage: UNK UNK, UNKNOWN
     Route: 065
  131. NAPROXEN SODIUM [Suspect]
     Active Substance: NAPROXEN SODIUM
     Indication: Product used for unknown indication
     Dosage: UNK UNK, UNKNOWN
     Route: 065
  132. NAPROXEN SODIUM [Suspect]
     Active Substance: NAPROXEN SODIUM
     Dosage: UNK UNK, UNKNOWN
     Route: 065
  133. PANTOPRAZOLE [Suspect]
     Active Substance: PANTOPRAZOLE
     Indication: Product used for unknown indication
     Dosage: UNK UNK, UNKNOWN
     Route: 065
  134. PANTOPRAZOLE [Suspect]
     Active Substance: PANTOPRAZOLE
     Dosage: UNK UNK, UNKNOWN
     Route: 065
  135. PANTOPRAZOLE [Suspect]
     Active Substance: PANTOPRAZOLE
     Dosage: UNK UNK, UNKNOWN
     Route: 065
  136. PANTOPRAZOLE [Suspect]
     Active Substance: PANTOPRAZOLE
     Dosage: UNK UNK, UNKNOWN
     Route: 065
  137. PANTOPRAZOLE [Suspect]
     Active Substance: PANTOPRAZOLE
     Dosage: UNK UNK, UNKNOWN
     Route: 065
  138. PANTOPRAZOLE SODIUM [Suspect]
     Active Substance: PANTOPRAZOLE SODIUM
     Indication: Product used for unknown indication
     Dosage: UNK UNK, UNKNOWN
     Route: 065
  139. PANTOPRAZOLE SODIUM [Suspect]
     Active Substance: PANTOPRAZOLE SODIUM
     Dosage: UNK UNK, UNKNOWN
     Route: 065
  140. PANTOPRAZOLE SODIUM [Suspect]
     Active Substance: PANTOPRAZOLE SODIUM
     Dosage: UNK UNK, UNKNOWN
     Route: 065
  141. PANTOPRAZOLE SODIUM [Suspect]
     Active Substance: PANTOPRAZOLE SODIUM
     Dosage: UNK UNK, UNKNOWN
     Route: 065
  142. PANTOPRAZOLE SODIUM [Suspect]
     Active Substance: PANTOPRAZOLE SODIUM
     Dosage: UNK UNK, UNKNOWN
     Route: 065
  143. PANTOPRAZOLE SODIUM [Suspect]
     Active Substance: PANTOPRAZOLE SODIUM
     Dosage: UNK UNK, UNKNOWN
     Route: 065
  144. PANTOPRAZOLE SODIUM [Suspect]
     Active Substance: PANTOPRAZOLE SODIUM
     Dosage: UNK UNK, UNKNOWN
     Route: 065
  145. PANTOPRAZOLE SODIUM [Suspect]
     Active Substance: PANTOPRAZOLE SODIUM
     Dosage: UNK UNK, UNKNOWN
     Route: 065
  146. PANTOPRAZOLE SODIUM ANHYDROUS [Suspect]
     Active Substance: PANTOPRAZOLE SODIUM ANHYDROUS
     Indication: Product used for unknown indication
     Dosage: UNK UNK, UNKNOWN
     Route: 065
  147. PNEUMOCOCCAL VACCINE POLYVALENT NOS [Suspect]
     Active Substance: PNEUMOCOCCAL VACCINE POLYVALENT
     Indication: Prophylaxis
     Dosage: UNK UNK, UNKNOWN
     Route: 065
  148. PNEUMOCOCCAL VACCINE POLYVALENT NOS [Suspect]
     Active Substance: PNEUMOCOCCAL VACCINE POLYVALENT
     Indication: Immunisation
     Dosage: UNK UNK, UNKNOWN
     Route: 065
  149. PNEUMOCOCCAL VACCINE POLYVALENT NOS [Suspect]
     Active Substance: PNEUMOCOCCAL VACCINE POLYVALENT
     Dosage: UNK UNK, UNKNOWN
     Route: 065
  150. PNEUMOCOCCAL VACCINE POLYVALENT NOS [Suspect]
     Active Substance: PNEUMOCOCCAL VACCINE POLYVALENT
     Dosage: UNK UNK, UNKNOWN
     Route: 065
  151. PNEUMOCOCCAL 13-VALENT CONJUGATE VACCINE [Suspect]
     Active Substance: PNEUMOCOCCAL 13-VALENT CONJUGATE VACCINE
     Indication: Prophylaxis
     Dosage: UNK UNK, UNKNOWN
     Route: 065
  152. PNEUMOCOCCAL 13-VALENT CONJUGATE VACCINE [Suspect]
     Active Substance: PNEUMOCOCCAL 13-VALENT CONJUGATE VACCINE
     Dosage: UNK UNK, UNKNOWN
     Route: 065
  153. PNEUMOCOCCAL 7-VALENT CONJUGATE VACCINE (DIPHTHERIA CRM197 PROTEIN) [Suspect]
     Active Substance: PNEUMOCOCCAL 7-VALENT CONJUGATE VACCINE (DIPHTHERIA CRM197 PROTEIN)
     Indication: Prophylaxis
     Dosage: UNK UNK, UNKNOWN
     Route: 065
  154. PNEUMOCOCCAL 7-VALENT CONJUGATE VACCINE (DIPHTHERIA CRM197 PROTEIN) [Suspect]
     Active Substance: PNEUMOCOCCAL 7-VALENT CONJUGATE VACCINE (DIPHTHERIA CRM197 PROTEIN)
     Dosage: UNK UNK, UNKNOWN
     Route: 065
  155. PREDNISONE [Suspect]
     Active Substance: PREDNISONE
     Indication: Asthma
     Dosage: UNK UNK, UNKNOWN
     Route: 065
  156. PREDNISONE [Suspect]
     Active Substance: PREDNISONE
     Dosage: UNK UNK, UNKNOWN
     Route: 065
  157. PREDNISONE [Suspect]
     Active Substance: PREDNISONE
     Dosage: UNK UNK, UNKNOWN
     Route: 065
  158. PREDNISONE [Suspect]
     Active Substance: PREDNISONE
     Dosage: UNK UNK, UNKNOWN
     Route: 065
  159. PREDNISONE [Suspect]
     Active Substance: PREDNISONE
     Dosage: UNK UNK, UNKNOWN
     Route: 065
  160. PREDNISONE [Suspect]
     Active Substance: PREDNISONE
     Dosage: UNK UNK, UNKNOWN
     Route: 065
  161. PREDNISONE [Suspect]
     Active Substance: PREDNISONE
     Dosage: UNK UNK, UNKNOWN
     Route: 065
  162. PREGABALIN [Suspect]
     Active Substance: PREGABALIN
     Indication: Product used for unknown indication
     Dosage: UNK UNK, UNKNOWN
     Route: 065
  163. PREGABALIN [Suspect]
     Active Substance: PREGABALIN
     Dosage: UNK UNK, UNKNOWN
     Route: 065
  164. PREGABALIN [Suspect]
     Active Substance: PREGABALIN
     Dosage: UNK UNK, UNKNOWN
     Route: 065
  165. PREGABALIN [Suspect]
     Active Substance: PREGABALIN
     Dosage: UNK UNK, UNKNOWN
     Route: 065
  166. PREGABALIN [Suspect]
     Active Substance: PREGABALIN
     Dosage: UNK UNK, UNKNOWN
     Route: 065
  167. PREVNAR 13 [Suspect]
     Active Substance: PNEUMOCOCCAL 13-VALENT CONJUGATE VACCINE
     Indication: Prophylaxis
     Dosage: UNK UNK, UNKNOWN
     Route: 065
  168. PREVNAR 13 [Suspect]
     Active Substance: PNEUMOCOCCAL 13-VALENT CONJUGATE VACCINE
     Dosage: UNK UNK, UNKNOWN
     Route: 030
  169. PREVNAR 13 [Suspect]
     Active Substance: PNEUMOCOCCAL 13-VALENT CONJUGATE VACCINE
     Dosage: UNK UNK, UNKNOWN
     Route: 065
  170. PREVNAR 13 [Suspect]
     Active Substance: PNEUMOCOCCAL 13-VALENT CONJUGATE VACCINE
     Dosage: UNK UNK, UNKNOWN
     Route: 065
  171. RAMIPRIL [Suspect]
     Active Substance: RAMIPRIL
     Indication: Prophylaxis
     Dosage: UNK UNK, UNKNOWN
     Route: 048
  172. RAMIPRIL [Suspect]
     Active Substance: RAMIPRIL
     Indication: Asthma
     Dosage: UNK UNK, UNKNOWN
     Route: 048
  173. RAMIPRIL [Suspect]
     Active Substance: RAMIPRIL
     Dosage: UNK UNK, UNKNOWN
     Route: 048
  174. RAMIPRIL [Suspect]
     Active Substance: RAMIPRIL
     Dosage: UNK UNK, UNKNOWN
     Route: 065
  175. RAMIPRIL [Suspect]
     Active Substance: RAMIPRIL
     Dosage: UNK UNK, UNKNOWN
     Route: 048
  176. RAMIPRIL [Suspect]
     Active Substance: RAMIPRIL
     Dosage: UNK UNK, UNKNOWN
     Route: 065
  177. RAMIPRIL [Suspect]
     Active Substance: RAMIPRIL
     Dosage: UNK UNK, UNKNOWN
     Route: 048
  178. RAMIPRIL [Suspect]
     Active Substance: RAMIPRIL
     Dosage: UNK UNK, UNKNOWN
     Route: 048
  179. RAMIPRIL [Suspect]
     Active Substance: RAMIPRIL
     Dosage: UNK UNK, UNKNOWN
     Route: 065
  180. ROSUVASTATIN [Suspect]
     Active Substance: ROSUVASTATIN
     Indication: Asthma
     Dosage: 1.0 DOSAGE FORM, BID
     Route: 048
  181. ROSUVASTATIN CALCIUM [Suspect]
     Active Substance: ROSUVASTATIN CALCIUM
     Indication: Product used for unknown indication
     Dosage: UNK UNK, UNKNOWN
     Route: 048
  182. ROSUVASTATIN CALCIUM [Suspect]
     Active Substance: ROSUVASTATIN CALCIUM
     Indication: Asthma
     Dosage: UNK UNK, UNKNOWN
     Route: 048
  183. ROSUVASTATIN CALCIUM [Suspect]
     Active Substance: ROSUVASTATIN CALCIUM
     Dosage: UNK UNK, UNKNOWN
     Route: 048
  184. ROSUVASTATIN CALCIUM [Suspect]
     Active Substance: ROSUVASTATIN CALCIUM
     Dosage: UNK UNK, UNKNOWN
     Route: 048
  185. ROSUVASTATIN CALCIUM [Suspect]
     Active Substance: ROSUVASTATIN CALCIUM
     Dosage: UNK UNK, UNKNOWN
     Route: 048
  186. ROSUVASTATIN CALCIUM [Suspect]
     Active Substance: ROSUVASTATIN CALCIUM
     Dosage: UNK UNK, UNKNOWN
     Route: 048
  187. ROSUVASTATIN CALCIUM [Suspect]
     Active Substance: ROSUVASTATIN CALCIUM
     Dosage: UNK UNK, UNKNOWN
     Route: 048
  188. ALBUTEROL [Suspect]
     Active Substance: ALBUTEROL
     Indication: Prophylaxis
     Dosage: UNK UNK, UNKNOWN
     Route: 065
  189. ALBUTEROL [Suspect]
     Active Substance: ALBUTEROL
     Indication: Asthma
     Dosage: UNK UNK, UNKNOWN
     Route: 065
  190. ALBUTEROL [Suspect]
     Active Substance: ALBUTEROL
     Dosage: 100.0 UG, UNKNOWN
     Route: 065
  191. ALBUTEROL [Suspect]
     Active Substance: ALBUTEROL
     Dosage: 100.0 UG, UNKNOWN
     Route: 065
  192. ALBUTEROL [Suspect]
     Active Substance: ALBUTEROL
     Dosage: UNK UNK, UNKNOWN
     Route: 065
  193. ALBUTEROL SULFATE [Suspect]
     Active Substance: ALBUTEROL SULFATE
     Indication: Asthma
     Dosage: UNK UNK, UNKNOWN
     Route: 065
  194. ALBUTEROL SULFATE [Suspect]
     Active Substance: ALBUTEROL SULFATE
     Dosage: UNK UNK, UNKNOWN
     Route: 065
  195. ALBUTEROL SULFATE [Suspect]
     Active Substance: ALBUTEROL SULFATE
     Dosage: UNK UNK, UNKNOWN
     Route: 065
  196. SPIRIVA [Suspect]
     Active Substance: TIOTROPIUM BROMIDE MONOHYDRATE
     Indication: Asthma
     Dosage: UNK UNK, DAILY
     Route: 065
  197. SPIRIVA [Suspect]
     Active Substance: TIOTROPIUM BROMIDE MONOHYDRATE
     Dosage: UNK UNK, UNKNOWN
     Route: 065
  198. SPIRIVA [Suspect]
     Active Substance: TIOTROPIUM BROMIDE MONOHYDRATE
     Dosage: 1 DOSAGE FORM, DAILY
     Route: 065
  199. SPIRIVA [Suspect]
     Active Substance: TIOTROPIUM BROMIDE MONOHYDRATE
     Dosage: 1 DOSAGE FORM, DAILY
     Route: 065
  200. SYMBICORT [Suspect]
     Active Substance: BUDESONIDE\FORMOTEROL FUMARATE DIHYDRATE
     Indication: Product used for unknown indication
     Dosage: UNK UNK, UNKNOWN
     Route: 055
  201. SYMBICORT [Suspect]
     Active Substance: BUDESONIDE\FORMOTEROL FUMARATE DIHYDRATE
     Indication: Asthma
     Dosage: UNK UNK, UNKNOWN
     Route: 055
  202. SYMBICORT [Suspect]
     Active Substance: BUDESONIDE\FORMOTEROL FUMARATE DIHYDRATE
     Dosage: UNK UNK, UNKNOWN
     Route: 055
  203. SYMBICORT [Suspect]
     Active Substance: BUDESONIDE\FORMOTEROL FUMARATE DIHYDRATE
     Dosage: UNK UNK, UNKNOWN
     Route: 055
  204. SYMBICORT [Suspect]
     Active Substance: BUDESONIDE\FORMOTEROL FUMARATE DIHYDRATE
     Dosage: 1.0 DOSAGE FORM, BID
     Route: 055
  205. SYMBICORT [Suspect]
     Active Substance: BUDESONIDE\FORMOTEROL FUMARATE DIHYDRATE
     Dosage: 1.0 DOSAGE FORM, UNKNOWN
     Route: 055
  206. SYMBICORT [Suspect]
     Active Substance: BUDESONIDE\FORMOTEROL FUMARATE DIHYDRATE
     Dosage: 2 DOSAGE FORM, BID
     Route: 055
  207. TADALAFIL\TAMSULOSIN HYDROCHLORIDE [Suspect]
     Active Substance: TADALAFIL\TAMSULOSIN HYDROCHLORIDE
     Indication: Product used for unknown indication
     Dosage: UNK UNK, UNKNOWN
     Route: 065
  208. TAMSULOSIN [Suspect]
     Active Substance: TAMSULOSIN
     Indication: Product used for unknown indication
     Dosage: UNK UNK, UNKNOWN
     Route: 065
  209. TAMSULOSIN [Suspect]
     Active Substance: TAMSULOSIN
     Dosage: UNK UNK, UNKNOWN
     Route: 065
  210. TAMSULOSIN HYDROCHLORIDE [Suspect]
     Active Substance: TAMSULOSIN HYDROCHLORIDE
     Indication: Product used for unknown indication
     Dosage: UNK UNK, UNKNOWN
     Route: 065
  211. TAMSULOSIN HYDROCHLORIDE [Suspect]
     Active Substance: TAMSULOSIN HYDROCHLORIDE
     Dosage: UNK UNK, UNKNOWN
     Route: 065
  212. TIOTROPIUM BROMIDE MONOHYDRATE [Suspect]
     Active Substance: TIOTROPIUM BROMIDE MONOHYDRATE
     Indication: Asthma
     Dosage: 2 DOSAGE FORM, UNKNOWN
     Route: 065
  213. TIOTROPIUM BROMIDE MONOHYDRATE [Suspect]
     Active Substance: TIOTROPIUM BROMIDE MONOHYDRATE
     Dosage: UNK UNK, DAILY
     Route: 065
  214. TIOTROPIUM BROMIDE MONOHYDRATE [Suspect]
     Active Substance: TIOTROPIUM BROMIDE MONOHYDRATE
     Dosage: 2 DOSAGE FORM, DAILY
     Route: 065
  215. TIOTROPIUM BROMIDE MONOHYDRATE [Suspect]
     Active Substance: TIOTROPIUM BROMIDE MONOHYDRATE
     Dosage: UNK UNK, DAILY
     Route: 065
  216. TIOTROPIUM BROMIDE MONOHYDRATE [Suspect]
     Active Substance: TIOTROPIUM BROMIDE MONOHYDRATE
     Dosage: UNK UNK, UNKNOWN
     Route: 065
  217. TIOTROPIUM BROMIDE MONOHYDRATE [Suspect]
     Active Substance: TIOTROPIUM BROMIDE MONOHYDRATE
     Dosage: UNK UNK, UNKNOWN
     Route: 065
  218. AMLODIPINE [Suspect]
     Active Substance: AMLODIPINE BESYLATE
     Indication: Product used for unknown indication
     Dosage: UNK UNK, UNKNOWN
     Route: 065
  219. LEVOFLOXACIN [Suspect]
     Active Substance: LEVOFLOXACIN
     Indication: Product used for unknown indication
     Dosage: UNK UNK, UNKNOWN
     Route: 065
  220. MESALAMINE [Suspect]
     Active Substance: MESALAMINE
     Indication: Product used for unknown indication
     Dosage: UNK UNK, UNKNOWN
     Route: 065
  221. MORNIFLUMATE [Suspect]
     Active Substance: MORNIFLUMATE
     Indication: Product used for unknown indication
     Dosage: UNK UNK, UNKNOWN
     Route: 065
  222. FINASTERIDE\TAMSULOSIN [Suspect]
     Active Substance: FINASTERIDE\TAMSULOSIN
     Indication: Product used for unknown indication
     Dosage: UNK UNK, UNKNOWN
     Route: 065

REACTIONS (21)
  - Asthma [Unknown]
  - Benign prostatic hyperplasia [Unknown]
  - Breath sounds abnormal [Unknown]
  - Bronchiectasis [Unknown]
  - Chronic obstructive pulmonary disease [Unknown]
  - Congenital hiatus hernia [Unknown]
  - Coronary artery disease [Unknown]
  - Full blood count abnormal [Unknown]
  - Hypercholesterolaemia [Unknown]
  - Joint injury [Unknown]
  - Malignant melanoma in situ [Unknown]
  - Micturition urgency [Unknown]
  - Obstructive airways disorder [Unknown]
  - Productive cough [Unknown]
  - Wheezing [Unknown]
  - Transient ischaemic attack [Unknown]
  - Dyspnoea [Unknown]
  - Dyspnoea exertional [Unknown]
  - Gastrooesophageal reflux disease [Unknown]
  - Hypertension [Unknown]
  - Therapeutic product effect incomplete [Unknown]
